FAERS Safety Report 14162482 (Version 2)
Quarter: 2017Q4

REPORT INFORMATION
  Report Type: Report from Study
  Country: US (occurrence: US)
  Receive Date: 20171106
  Receipt Date: 20171122
  Transmission Date: 20180321
  Serious: Yes (Hospitalization)
  Sender: FDA-Public Use
  Company Number: US-ALKERMES INC.-ALK-2017-004659

PATIENT
  Age: 40 Year
  Sex: Male

DRUGS (3)
  1. VIVITROL [Suspect]
     Active Substance: NALTREXONE
     Indication: DRUG USE DISORDER
     Dosage: 380 MG, QMO
     Route: 030
     Dates: start: 20171006
  2. HIV P.E.P. [Concomitant]
     Indication: PROPHYLAXIS AGAINST HIV INFECTION
     Dosage: UNK
  3. WELLBUTRIN [Suspect]
     Active Substance: BUPROPION HYDROCHLORIDE
     Indication: DRUG USE DISORDER
     Dosage: 450 MG, QD
     Route: 048

REACTIONS (24)
  - Substance-induced psychotic disorder [Recovered/Resolved]
  - Stress [Recovered/Resolved]
  - Judgement impaired [Recovered/Resolved]
  - Blood alkaline phosphatase increased [Recovered/Resolved]
  - Flight of ideas [Recovered/Resolved]
  - Mental disorder [Recovered/Resolved]
  - Asocial behaviour [Recovered/Resolved]
  - Patient uncooperative [Recovered/Resolved]
  - Opiates positive [Recovered/Resolved]
  - Aspartate aminotransferase increased [Recovered/Resolved]
  - Illusion [Recovered/Resolved]
  - Anger [Recovered/Resolved]
  - Drug abuse [Unknown]
  - Hallucination [Recovered/Resolved]
  - Inappropriate affect [Recovered/Resolved]
  - Alanine aminotransferase increased [Recovered/Resolved]
  - Psychotic symptom [Recovered/Resolved]
  - Aggression [Recovered/Resolved]
  - Drug screen positive [Recovered/Resolved]
  - Affect lability [Recovered/Resolved]
  - Off label use [Unknown]
  - Stubbornness [Recovered/Resolved]
  - Agitation [Recovered/Resolved]
  - Disturbance in attention [Recovered/Resolved]

NARRATIVE: CASE EVENT DATE: 20171022
